FAERS Safety Report 9260558 (Version 1)
Quarter: 2013Q2

REPORT INFORMATION
  Report Type: Spontaneous
  Country: US (occurrence: US)
  Receive Date: 20130429
  Receipt Date: 20130429
  Transmission Date: 20140414
  Serious: Yes (Hospitalization)
  Sender: FDA-Public Use
  Company Number: US-BAYER-2013-051466

PATIENT
  Age: 25 Year
  Sex: Female
  Weight: 66.3 kg

DRUGS (5)
  1. YAZ [Suspect]
  2. RESTORIL [Concomitant]
     Dosage: UNK
     Dates: start: 20090423
  3. ZYRTEC [Concomitant]
     Dosage: UNK
     Dates: start: 20090424
  4. AVELOX [Concomitant]
  5. KEPPRA [Concomitant]
     Indication: CONVULSION PROPHYLAXIS

REACTIONS (3)
  - Intracranial venous sinus thrombosis [None]
  - Haemorrhage intracranial [None]
  - Transverse sinus thrombosis [None]
